FAERS Safety Report 25413366 (Version 1)
Quarter: 2025Q2

REPORT INFORMATION
  Report Type: Spontaneous
  Country: US (occurrence: None)
  Receive Date: 20250606
  Receipt Date: 20250606
  Transmission Date: 20250717
  Serious: Yes (Death)
  Sender: FDA-CTU
  Company Number: None

PATIENT
  Age: 81 Year
  Sex: Male

DRUGS (2)
  1. ESBRIET [Suspect]
     Active Substance: PIRFENIDONE
     Indication: Idiopathic pulmonary fibrosis
     Dosage: FREQUENCY : 3 TIMES A DAY;?
     Route: 048
     Dates: start: 20170127, end: 20250525
  2. CELLCEPT [Concomitant]
     Active Substance: MYCOPHENOLATE MOFETIL

REACTIONS (8)
  - Encephalopathy [None]
  - Pleural effusion [None]
  - Atelectasis [None]
  - Acidosis [None]
  - Pneumonia [None]
  - Hypoxia [None]
  - Hypercapnia [None]
  - Pneumonia aspiration [None]

NARRATIVE: CASE EVENT DATE: 20250525
